FAERS Safety Report 6501554-1 (Version None)
Quarter: 2009Q4

REPORT INFORMATION
  Report Type: 
  Country: None (occurrence: None)
  Receive Date: 20091216
  Receipt Date: 20091210
  Transmission Date: 20100525
  Serious: Yes (Other)
  Sender: FDA-Public Use
  Company Number: B0616254A

PATIENT
  Sex: Female

DRUGS (5)
  1. SERETIDE [Suspect]
     Indication: ASTHMA
     Dosage: 1PUFF TWICE PER DAY
     Route: 055
  2. UNSPECIFIED DRUGS [Concomitant]
  3. SINGULAIR [Concomitant]
  4. RUPATADINE FUMARATE [Concomitant]
  5. SPIRIVA [Concomitant]

REACTIONS (2)
  - PLATELET COUNT DECREASED [None]
  - THROMBOCYTOPENIA [None]
